FAERS Safety Report 18205315 (Version 1)
Quarter: 2020Q3

REPORT INFORMATION
  Report Type: Spontaneous
  Country: US (occurrence: US)
  Receive Date: 20200828
  Receipt Date: 20200828
  Transmission Date: 20201103
  Serious: No
  Sender: FDA-Public Use
  Company Number: US-SA-2020SA225743

PATIENT

DRUGS (1)
  1. ALLEGRA ALLERGY [Suspect]
     Active Substance: FEXOFENADINE HYDROCHLORIDE
     Dosage: TOOK 2 ALLEGRA ALLERGY 24 HOUR TABLETS (180 MG) IN LESS THAN A 24 HOUR PERIOD

REACTIONS (1)
  - Extra dose administered [Unknown]
